FAERS Safety Report 9645975 (Version 3)
Quarter: 2013Q4

REPORT INFORMATION
  Report Type: Spontaneous
  Country: US (occurrence: US)
  Receive Date: 20131025
  Receipt Date: 20131213
  Transmission Date: 20140711
  Serious: Yes (Other)
  Sender: FDA-Public Use
  Company Number: US-GLAXOSMITHKLINE-A1046322A

PATIENT
  Age: 67 Year
  Sex: Female

DRUGS (10)
  1. ADVAIR [Suspect]
     Indication: CHRONIC OBSTRUCTIVE PULMONARY DISEASE
     Dosage: 1PUFF TWICE PER DAY
     Route: 055
     Dates: start: 201204
  2. OXYGEN [Concomitant]
  3. RESCUE REMEDY [Concomitant]
  4. LISINOPRIL [Concomitant]
  5. ATENOLOL [Concomitant]
  6. HCTZ [Concomitant]
  7. VITAMIN D [Concomitant]
  8. PRAVASTATIN [Concomitant]
  9. VITAMIN C [Concomitant]
  10. BABY ASPIRIN [Concomitant]

REACTIONS (4)
  - Oxygen supplementation [Unknown]
  - Dyspnoea [Not Recovered/Not Resolved]
  - Extra dose administered [Unknown]
  - Product quality issue [Unknown]
